FAERS Safety Report 7213217-8 (Version None)
Quarter: 2011Q1

REPORT INFORMATION
  Report Type: 
  Country: None (occurrence: None)
  Receive Date: 20110106
  Receipt Date: 20110104
  Transmission Date: 20110831
  Serious: Yes (Death, Other)
  Sender: FDA-Public Use
  Company Number: JP-TEVA-261241ISR

PATIENT
  Sex: Male

DRUGS (14)
  1. GEMCITABINE [Suspect]
     Indication: T-CELL LYMPHOMA REFRACTORY
  2. IRINOTECAN [Suspect]
     Indication: T-CELL LYMPHOMA REFRACTORY
  3. CISPLATIN [Suspect]
     Indication: T-CELL LYMPHOMA REFRACTORY
  4. DOXORUBICIN [Suspect]
     Indication: T-CELL LYMPHOMA REFRACTORY
  5. DEXAMETHASONE [Suspect]
  6. METHOTREXATE [Suspect]
     Indication: T-CELL LYMPHOMA REFRACTORY
  7. IFOSFAMIDE [Suspect]
     Indication: T-CELL LYMPHOMA REFRACTORY
  8. CYCLOPHOSPHAMIDE [Suspect]
     Indication: T-CELL LYMPHOMA REFRACTORY
  9. DEXAMETHASONE [Suspect]
     Indication: T-CELL LYMPHOMA REFRACTORY
  10. VINCRISTINE [Suspect]
     Indication: T-CELL LYMPHOMA REFRACTORY
  11. ETOPOSIDE [Suspect]
     Indication: T-CELL LYMPHOMA REFRACTORY
  12. CARBOPLATIN [Suspect]
     Indication: T-CELL LYMPHOMA REFRACTORY
  13. CYTARABINE [Suspect]
     Indication: T-CELL LYMPHOMA REFRACTORY
  14. PREDNISOLONE [Suspect]
     Indication: T-CELL LYMPHOMA REFRACTORY

REACTIONS (5)
  - DYSPNOEA [None]
  - DISEASE PROGRESSION [None]
  - POLYOMAVIRUS-ASSOCIATED NEPHROPATHY [None]
  - PYREXIA [None]
  - RENAL FAILURE ACUTE [None]
